FAERS Safety Report 8551801-X (Version None)
Quarter: 2012Q3

REPORT INFORMATION
  Report Type: 
  Country: None (occurrence: None)
  Receive Date: 20120730
  Receipt Date: 20120719
  Transmission Date: 20120928
  Serious: Yes (Other)
  Sender: FDA-Public Use
  Company Number: CN-BAXTER-2012BAX012387

PATIENT
  Sex: Male
  Weight: 50 kg

DRUGS (2)
  1. ALPROSTADIL [Suspect]
     Indication: VASOCONSTRICTION
  2. 5% GLUCOSE  INJECTION [Suspect]
     Indication: MEDICATION DILUTION
     Route: 041
     Dates: start: 20101225, end: 20101225

REACTIONS (2)
  - PYREXIA [None]
  - ANAPHYLACTOID REACTION [None]
